FAERS Safety Report 9242712 (Version 2)
Quarter: 2013Q2

REPORT INFORMATION
  Report Type: Spontaneous
  Country: FR (occurrence: FR)
  Receive Date: 20130419
  Receipt Date: 20130617
  Transmission Date: 20140414
  Serious: Yes (Hospitalization)
  Sender: FDA-Public Use
  Company Number: FR-JNJFOC-20130406139

PATIENT
  Age: 89 Year
  Sex: Male

DRUGS (5)
  1. RISPERDAL [Suspect]
     Indication: PRODUCT USED FOR UNKNOWN INDICATION
     Route: 048
  2. RISPERDAL [Suspect]
     Indication: PRODUCT USED FOR UNKNOWN INDICATION
     Dosage: 1 MG, 0.5 MG PER DAY
     Route: 048
     Dates: end: 20130314
  3. TARDYFERON [Concomitant]
     Dosage: 80, TWICE A DAY
     Route: 065
  4. EBIXA [Concomitant]
     Route: 065
  5. DOLIPRANE [Concomitant]
     Indication: PAIN
     Route: 065

REACTIONS (12)
  - Confusional state [Unknown]
  - Dysarthria [Unknown]
  - Extrapyramidal disorder [Recovered/Resolved]
  - Somnolence [Recovered/Resolved]
  - Dehydration [Recovered/Resolved]
  - Hypernatraemia [Unknown]
  - Atrial fibrillation [Unknown]
  - Bundle branch block right [Unknown]
  - Atrioventricular block [Unknown]
  - Rhabdomyolysis [Recovered/Resolved]
  - Pyrexia [Recovered/Resolved]
  - Hypokalaemia [Unknown]
